FAERS Safety Report 24969888 (Version 1)
Quarter: 2025Q1

REPORT INFORMATION
  Report Type: Spontaneous
  Country: CN (occurrence: CN)
  Receive Date: 20250214
  Receipt Date: 20250214
  Transmission Date: 20250408
  Serious: Yes (Other)
  Sender: AMGEN
  Company Number: CN-AMGEN-CHNSP2025026989

PATIENT
  Age: 46 Year
  Sex: Male

DRUGS (12)
  1. BLINATUMOMAB [Suspect]
     Active Substance: BLINATUMOMAB
     Indication: B-cell type acute leukaemia
     Route: 065
     Dates: start: 202308
  2. BLINATUMOMAB [Suspect]
     Active Substance: BLINATUMOMAB
     Indication: KMT2A gene mutation
     Dosage: 9 MICROGRAM, QD
     Route: 065
  3. BLINATUMOMAB [Suspect]
     Active Substance: BLINATUMOMAB
     Dosage: 18 MICROGRAM, QD
     Route: 065
  4. VINDESINE [Concomitant]
     Active Substance: VINDESINE
     Route: 065
  5. DAUNORUBICIN [Concomitant]
     Active Substance: DAUNORUBICIN
     Route: 065
  6. ASPARAGINASE [Concomitant]
     Active Substance: ASPARAGINASE
     Route: 065
  7. PREDNISONE [Concomitant]
     Active Substance: PREDNISONE
     Route: 065
  8. VENETOCLAX [Concomitant]
     Active Substance: VENETOCLAX
     Dosage: 200 MILLIGRAM, QD ON DAYS 1-14
     Route: 065
  9. TUCIDINOSTAT [Concomitant]
     Active Substance: TUCIDINOSTAT
     Route: 065
  10. AZACITIDINE [Concomitant]
     Active Substance: AZACITIDINE
     Dosage: 100 MILLIGRAM, QD ON DAYS 1-7
     Route: 065
  11. GENETICALLY-MODIFIED AUTOLOGOUS T CELLS NOS [Concomitant]
     Active Substance: GENETICALLY-MODIFIED AUTOLOGOUS T CELLS NOS
     Route: 065
  12. CYCLOPHOSPHAMIDE\FLUDARABINE [Concomitant]
     Active Substance: CYCLOPHOSPHAMIDE\FLUDARABINE
     Route: 065

REACTIONS (4)
  - Acute lymphocytic leukaemia recurrent [Unknown]
  - Thrombocytopenia [Unknown]
  - Pneumonia [Recovered/Resolved]
  - Leukopenia [Unknown]
